FAERS Safety Report 9161254 (Version 2)
Quarter: 2013Q1

REPORT INFORMATION
  Report Type: Spontaneous
  Country: NL (occurrence: NL)
  Receive Date: 20130313
  Receipt Date: 20130329
  Transmission Date: 20140127
  Serious: Yes (Life-Threatening, Hospitalization)
  Sender: FDA-Public Use
  Company Number: NL-MERCK-1303NLD005169

PATIENT
  Age: 44 Year
  Sex: Female
  Weight: 70 kg

DRUGS (1)
  1. MARVELON [Suspect]
     Indication: CONTRACEPTION
     Dosage: 1 DF, ONCE IN A CYCLE
     Dates: start: 1988, end: 20030219

REACTIONS (2)
  - Cerebral thrombosis [Recovered/Resolved with Sequelae]
  - Convulsion [Recovered/Resolved with Sequelae]
